FAERS Safety Report 12966993 (Version 1)
Quarter: 2016Q4

REPORT INFORMATION
  Report Type: Spontaneous
  Country: US (occurrence: US)
  Receive Date: 20161123
  Receipt Date: 20161123
  Transmission Date: 20170207
  Serious: No
  Sender: FDA-Public Use
  Company Number: US-ALVOGEN-2015-ALVOGEN-018750

PATIENT
  Sex: Female
  Weight: 67.1 kg

DRUGS (3)
  1. BUDESONIDE/FORMOTEROL FUMARATE [Suspect]
     Active Substance: BUDESONIDE\FORMOTEROL FUMARATE
     Indication: ASTHMA
     Dosage: 2 PUFFS 2 TIMES PER DAY
     Route: 055
  2. LISINOPRIL. [Suspect]
     Active Substance: LISINOPRIL
     Indication: HYPERTENSION
     Dates: start: 201504, end: 2015
  3. THYROID [Concomitant]
     Active Substance: LEVOTHYROXINE\LIOTHYRONINE
     Indication: HYPOTHYROIDISM
     Route: 048

REACTIONS (2)
  - Dysphonia [Not Recovered/Not Resolved]
  - Cough [Not Recovered/Not Resolved]
